FAERS Safety Report 5130569-3 (Version None)
Quarter: 2006Q4

REPORT INFORMATION
  Report Type: 
  Country: None (occurrence: None)
  Receive Date: 20061017
  Receipt Date: 20061017
  Transmission Date: 20070319
  Serious: Yes (Hospitalization)
  Sender: FDA-Public Use
  Company Number: None

PATIENT
  Sex: Male
  Weight: 156 kg

DRUGS (2)
  1. HEPARIN [Suspect]
     Indication: ATRIAL FIBRILLATION
     Dosage: 25000 UNITS/ 500ML 20 ML/HOUR IV
     Route: 042
     Dates: start: 20060910, end: 20060911
  2. LOVENOX [Suspect]
     Indication: ATRIAL FIBRILLATION
     Dosage: 160 MG EVERY 12 HOURS SQ
     Route: 058
     Dates: start: 20060908, end: 20060910

REACTIONS (1)
  - EPISTAXIS [None]
